FAERS Safety Report 24140828 (Version 1)
Quarter: 2024Q3

REPORT INFORMATION
  Report Type: Spontaneous
  Country: CN (occurrence: CN)
  Receive Date: 20240726
  Receipt Date: 20240726
  Transmission Date: 20241017
  Serious: Yes (Other)
  Sender: QUAGEN PHARMACEUTICALS
  Company Number: CN-QUAGEN-2024QUALIT00224

PATIENT
  Age: 38 Year
  Sex: Female

DRUGS (6)
  1. TRIAMCINOLONE ACETONIDE [Suspect]
     Active Substance: TRIAMCINOLONE ACETONIDE
     Indication: Endocrine ophthalmopathy
     Dosage: 1ML SYRINGE
     Dates: start: 20230103
  2. TRIAMCINOLONE ACETONIDE [Suspect]
     Active Substance: TRIAMCINOLONE ACETONIDE
     Dosage: 1ML SYRINGE
     Route: 047
     Dates: start: 20230208
  3. TRIAMCINOLONE ACETONIDE [Suspect]
     Active Substance: TRIAMCINOLONE ACETONIDE
     Dosage: 1ML SYRINGE
     Route: 047
     Dates: start: 20230404
  4. PROPYLTHIOURACIL [Concomitant]
     Active Substance: PROPYLTHIOURACIL
     Route: 065
  5. PROPARACAINE HYDROCHLORIDE [Concomitant]
     Active Substance: PROPARACAINE HYDROCHLORIDE
     Indication: Anaesthesia
     Route: 065
  6. POVIDONE-IODINE [Concomitant]
     Active Substance: POVIDONE-IODINE
     Route: 065

REACTIONS (6)
  - Retinal artery occlusion [Unknown]
  - Orbital haemorrhage [Unknown]
  - Ocular hypertension [Unknown]
  - Hyperlipidaemia [Unknown]
  - Product use in unapproved indication [Unknown]
  - Product use issue [Unknown]
